FAERS Safety Report 7192164 (Version 3)
Quarter: 2014Q1

REPORT INFORMATION
  Report Type: Report from Study
  Country: CA (occurrence: CA)
  Receive Date: 20091129
  Receipt Date: 20140106
  Transmission Date: 20141002
  Serious: Yes (Hospitalization, Other)
  Sender: FDA-Public Use
  Company Number: PHHO2009CA03850

PATIENT
  Age: 65 Year
  Sex: Male
  Weight: 72.6 kg

DRUGS (2)
  1. EVEROLIMUS [Suspect]
     Indication: NON-SMALL CELL LUNG CANCER
     Dosage: 5MG
     Route: 048
     Dates: start: 20090226, end: 20090310
  2. ERLOTINIB [Suspect]
     Indication: NON-SMALL CELL LUNG CANCER
     Dosage: UNKNOWN
     Dates: start: 20090226

REACTIONS (9)
  - Pneumonia [Recovered/Resolved]
  - Lung infiltration [Recovered/Resolved]
  - Dyspnoea [Recovered/Resolved]
  - Productive cough [Recovered/Resolved]
  - Haemophilus infection [Recovered/Resolved]
  - Pneumonitis [Recovered/Resolved]
  - Hyponatraemia [Recovered/Resolved]
  - Malignant neoplasm progression [Recovered/Resolved]
  - Anaemia [Recovered/Resolved]
